FAERS Safety Report 6816119-1 (Version None)
Quarter: 2010Q3

REPORT INFORMATION
  Report Type: 
  Country: None (occurrence: None)
  Receive Date: 20100702
  Receipt Date: 20100702
  Transmission Date: 20110219
  Serious: Yes (Hospitalization)
  Sender: FDA-Public Use
  Company Number: None

PATIENT
  Age: 60 Year
  Sex: Male

DRUGS (1)
  1. PACLITAXEL [Suspect]
     Dosage: 372 MG ONCE IV
     Route: 042
     Dates: start: 20100628, end: 20100628

REACTIONS (3)
  - CHEST PAIN [None]
  - DYSPNOEA [None]
  - INFUSION RELATED REACTION [None]
